FAERS Safety Report 7955126-2 (Version None)
Quarter: 2011Q4

REPORT INFORMATION
  Report Type: 
  Country: None (occurrence: None)
  Receive Date: 20111202
  Receipt Date: 20111130
  Transmission Date: 20120403
  Serious: Yes (Death)
  Sender: FDA-Public Use
  Company Number: GB-ABBOTT-11P-167-0879680-00

PATIENT
  Sex: Female

DRUGS (2)
  1. HUMIRA [Suspect]
     Indication: RHEUMATOID ARTHRITIS
     Route: 058
     Dates: start: 20060115
  2. METHOTREXATE [Concomitant]
     Indication: PRODUCT USED FOR UNKNOWN INDICATION

REACTIONS (7)
  - SEPSIS [None]
  - CELLULITIS [None]
  - PERIPHERAL ISCHAEMIA [None]
  - RHEUMATOID ARTHRITIS [None]
  - ANGIOPATHY [None]
  - MYOCARDIAL ISCHAEMIA [None]
  - RENAL DISORDER [None]
